FAERS Safety Report 7827801-1 (Version None)
Quarter: 2011Q4

REPORT INFORMATION
  Report Type: 
  Country: None (occurrence: None)
  Receive Date: 20111017
  Receipt Date: 20111006
  Transmission Date: 20120403
  Serious: Yes (Other)
  Sender: FDA-Public Use
  Company Number: AUR-APL-2011-05364

PATIENT
  Age: 70 Year
  Sex: Male
  Weight: 86.1834 kg

DRUGS (9)
  1. ASPIRIN [Concomitant]
  2. SIMVASTATIN [Suspect]
     Indication: PRODUCT USED FOR UNKNOWN INDICATION
     Dosage: (80 MG,1 D),ORAL ; (40 MG),ORAL ; (10 MG),ORAL
     Route: 048
     Dates: start: 20110926, end: 20111003
  3. SIMVASTATIN [Suspect]
     Indication: PRODUCT USED FOR UNKNOWN INDICATION
     Dosage: (80 MG,1 D),ORAL ; (40 MG),ORAL ; (10 MG),ORAL
     Route: 048
     Dates: start: 20101001
  4. SIMVASTATIN [Suspect]
     Indication: PRODUCT USED FOR UNKNOWN INDICATION
     Dosage: (80 MG,1 D),ORAL ; (40 MG),ORAL ; (10 MG),ORAL
     Route: 048
     Dates: start: 20100601
  5. DILTIAZEM [Concomitant]
  6. OMEPRAZOLE [Concomitant]
  7. AGGRENOX [Concomitant]
  8. FUROSEMIDE [Concomitant]
  9. LISINOPRIL [Concomitant]

REACTIONS (4)
  - GAIT DISTURBANCE [None]
  - FATIGUE [None]
  - MUSCULAR WEAKNESS [None]
  - FEELING ABNORMAL [None]
